FAERS Safety Report 7664506 (Version 2)
Quarter: 2013Q2

REPORT INFORMATION
  Report Type: Spontaneous
  Country: US (occurrence: US)
  Receive Date: 20101111
  Receipt Date: 20130415
  Transmission Date: 20140414
  Serious: Yes (Other)
  Sender: FDA-Public Use
  Company Number: US-ROCHE-718711

PATIENT
  Age: 15 Year
  Sex: Male
  Weight: 52.2 kg

DRUGS (2)
  1. ACCUTANE [Suspect]
     Indication: ACNE
     Route: 065
     Dates: start: 200209, end: 200308
  2. ADVIL [Concomitant]
     Dosage: RECEIVED SPORADICALLY
     Route: 065

REACTIONS (7)
  - Colitis ulcerative [Unknown]
  - Gastrointestinal injury [Unknown]
  - Fibula fracture [Unknown]
  - Photosensitivity reaction [Unknown]
  - Dry skin [Unknown]
  - Lip dry [Unknown]
  - Foot fracture [Unknown]
